FAERS Safety Report 8764875 (Version 2)
Quarter: 2013Q4

REPORT INFORMATION
  Report Type: Spontaneous
  Country: US (occurrence: US)
  Receive Date: 20120901
  Receipt Date: 20131101
  Transmission Date: 20140711
  Serious: No
  Sender: FDA-Public Use
  Company Number: US-009507513-1208USA007333

PATIENT
  Sex: Female

DRUGS (3)
  1. PEGINTRON [Suspect]
     Indication: HEPATITIS C
     Dosage: 120 MCG PER 0.5 ML, QW
     Route: 058
  2. FLONASE [Concomitant]
     Dosage: UNK, PRN
  3. ALPRAZOLAM [Concomitant]
     Dosage: UNK, PRN

REACTIONS (4)
  - Back pain [Unknown]
  - Musculoskeletal pain [Unknown]
  - Dizziness [Unknown]
  - Injection site reaction [Unknown]
